FAERS Safety Report 5468828-7 (Version None)
Quarter: 2007Q3

REPORT INFORMATION
  Report Type: 
  Country: None (occurrence: None)
  Receive Date: 20070926
  Receipt Date: 20070919
  Transmission Date: 20080115
  Serious: Yes (Hospitalization)
  Sender: FDA-Public Use
  Company Number: JP-BOEHRINGER INGELHEIM PHARMACEUTICALS, INC.-2007-BP-21275NB

PATIENT
  Sex: Female

DRUGS (24)
  1. CATAPRES [Suspect]
     Route: 048
  2. MOBIC [Suspect]
     Route: 048
  3. DIBETOS [Suspect]
     Route: 065
  4. LIPITOR [Suspect]
     Route: 065
  5. REMICADE [Suspect]
     Indication: RHEUMATOID ARTHRITIS
     Route: 042
     Dates: start: 20041007
  6. RIMATIL [Suspect]
     Route: 065
  7. RHEUMATREX [Suspect]
     Route: 065
  8. BAYLOTENSIN [Suspect]
     Route: 065
  9. ADALAT [Suspect]
     Route: 065
  10. GLIMICRON [Suspect]
     Route: 065
  11. BASEN [Suspect]
     Route: 065
  12. METHYCOBAL [Suspect]
     Route: 065
  13. MUCOSTA [Suspect]
     Route: 065
  14. PREDNISOLONE [Concomitant]
     Route: 048
     Dates: start: 19920919
  15. INSULIN [Concomitant]
     Route: 048
     Dates: start: 20041123
  16. FAMOTIDINE [Concomitant]
     Route: 065
     Dates: start: 20041123
  17. FUNGIZONE [Concomitant]
     Route: 065
     Dates: start: 20041123
  18. ISODINE GARGLE (POVIDONE IODINE) [Concomitant]
     Route: 065
     Dates: start: 20041123
  19. DIART [Concomitant]
     Route: 065
     Dates: start: 20041203
  20. CLARITHROMYCIN [Concomitant]
     Route: 065
     Dates: start: 20041209
  21. NU-LOTAN [Concomitant]
     Route: 065
     Dates: start: 20041123
  22. KETOPROFEN [Concomitant]
     Route: 048
     Dates: start: 20041216
  23. SIMVASTATIN [Concomitant]
     Route: 065
     Dates: start: 20041220
  24. URSO 250 [Concomitant]
     Route: 065
     Dates: start: 20041222

REACTIONS (3)
  - GINGIVITIS [None]
  - PNEUMOCYSTIS JIROVECI INFECTION [None]
  - PNEUMONIA CYTOMEGALOVIRAL [None]
